FAERS Safety Report 23823996 (Version 2)
Quarter: 2025Q2

REPORT INFORMATION
  Report Type: Spontaneous
  Country: US (occurrence: US)
  Receive Date: 20240507
  Receipt Date: 20250514
  Transmission Date: 20250716
  Serious: No
  Sender: UCB
  Company Number: US-UCBSA-2023058958

PATIENT
  Sex: Female
  Weight: 108.84 kg

DRUGS (1)
  1. CIMZIA [Suspect]
     Active Substance: CERTOLIZUMAB PEGOL
     Indication: Psoriatic arthropathy
     Dosage: 400 MILLIGRAM, EV 2 WEEKS(QOW) (INJECT 400MG (2 SYRINGES) SUBCUTANEOUSLY EVERY 2 WEEKS AS DIRECTED.)
     Route: 058
     Dates: start: 202302

REACTIONS (3)
  - Illness [Unknown]
  - Product availability issue [Unknown]
  - Therapy interrupted [Unknown]

NARRATIVE: CASE EVENT DATE: 20230101
